FAERS Safety Report 19332072 (Version 1)
Quarter: 2021Q2

REPORT INFORMATION
  Report Type: Spontaneous
  Country: CN (occurrence: CN)
  Receive Date: 20210529
  Receipt Date: 20210529
  Transmission Date: 20210717
  Serious: Yes (Other)
  Sender: FDA-Public Use
  Company Number: CN-TAKEDA-2021TUS032994

PATIENT

DRUGS (7)
  1. VITAMIN C [Concomitant]
     Active Substance: ASCORBIC ACID
     Indication: VIRAL MYOCARDITIS
     Dosage: 200 MILLIGRAM/TIME, TID
  2. PREDNISONE. [Concomitant]
     Active Substance: PREDNISONE
     Indication: VIRAL MYOCARDITIS
     Dosage: UNK, QD
     Route: 048
  3. HUMAN NORMAL IMMUNOGLOBULIN [Suspect]
     Active Substance: HUMAN IMMUNOGLOBULIN G
     Indication: VIRAL MYOCARDITIS
     Dosage: 400 MILLIGRAM/KILOGRAM, QD
     Route: 042
  4. VITAMIN E [Concomitant]
     Active Substance: .ALPHA.-TOCOPHEROL
     Indication: VIRAL MYOCARDITIS
     Dosage: UNK
  5. CREATINE PHOSPHATE [Concomitant]
     Active Substance: PHOSPHOCREATINE
     Indication: VIRAL MYOCARDITIS
     Dosage: UNK
  6. VITAMIN B [Concomitant]
     Active Substance: VITAMIN B
     Indication: VIRAL MYOCARDITIS
     Dosage: UNK
  7. OXYGEN. [Concomitant]
     Active Substance: OXYGEN
     Dosage: UNK

REACTIONS (2)
  - Leukopenia [Unknown]
  - Off label use [Unknown]
